FAERS Safety Report 18212748 (Version 3)
Quarter: 2020Q4

REPORT INFORMATION
  Report Type: Report from Study
  Country: US (occurrence: US)
  Receive Date: 20200831
  Receipt Date: 20201103
  Transmission Date: 20210113
  Serious: No
  Sender: FDA-Public Use
  Company Number: NVSC2020US237117

PATIENT
  Sex: Female

DRUGS (1)
  1. COSENTYX [Suspect]
     Active Substance: SECUKINUMAB
     Indication: PSORIASIS
     Dosage: 300 MG, QW
     Route: 058
     Dates: start: 202008

REACTIONS (3)
  - Therapeutic product effect incomplete [Recovering/Resolving]
  - Skin exfoliation [Not Recovered/Not Resolved]
  - Psoriasis [Recovering/Resolving]
